FAERS Safety Report 6709561-0 (Version None)
Quarter: 2010Q2

REPORT INFORMATION
  Report Type: 
  Country: None (occurrence: None)
  Receive Date: 20100503
  Receipt Date: 20100503
  Transmission Date: 20101027
  Serious: Yes (Other)
  Sender: FDA-Public Use
  Company Number: None

PATIENT
  Age: 29 Year
  Sex: Female
  Weight: 50.8029 kg

DRUGS (2)
  1. BUDEPRION XL 300MG -DONT KNOW MAN. BUT CHK W/ FILLED-LEWIS DRUG PH# 60 [Suspect]
     Indication: DEPRESSION
     Dosage: 300MG 1 TIMES DAILY PO
     Route: 048
     Dates: start: 20070312, end: 20070319
  2. BUPROPION HYDROCHLORIDE [Suspect]
     Indication: ANXIETY
     Dosage: 150MG  3 TIMES DAILY PO
     Route: 048
     Dates: start: 20100423, end: 20100502

REACTIONS (4)
  - ANXIETY [None]
  - DEPRESSION [None]
  - DRUG INEFFECTIVE [None]
  - PRODUCT SUBSTITUTION ISSUE [None]
